FAERS Safety Report 5353664-2 (Version None)
Quarter: 2007Q2

REPORT INFORMATION
  Report Type: 
  Country: None (occurrence: None)
  Receive Date: 20070612
  Receipt Date: 20070606
  Transmission Date: 20071010
  Serious: Yes (Hospitalization)
  Sender: FDA-Public Use
  Company Number: ES-AVENTIS-200712805EU

PATIENT
  Age: 87 Year
  Sex: Female

DRUGS (6)
  1. SEGURIL                            /00032601/ [Suspect]
     Route: 048
     Dates: end: 20050501
  2. ALDACTONE [Suspect]
     Route: 048
     Dates: end: 20050523
  3. ENALAPRIL MALEATE [Suspect]
     Route: 048
     Dates: end: 20050523
  4. COROPRES [Concomitant]
     Route: 048
     Dates: end: 20050501
  5. OXIS TURBUHALER [Concomitant]
     Indication: ASTHMA
     Route: 055
  6. SPIRIVA [Concomitant]
     Indication: ASTHMA
     Route: 055

REACTIONS (3)
  - DRUG INTERACTION [None]
  - HYPERKALAEMIA [None]
  - RENAL FAILURE ACUTE [None]
